FAERS Safety Report 23071176 (Version 1)
Quarter: 2023Q4

REPORT INFORMATION
  Report Type: Spontaneous
  Country: RU (occurrence: RU)
  Receive Date: 20231016
  Receipt Date: 20231016
  Transmission Date: 20240110
  Serious: Yes (Life-Threatening)
  Sender: FDA-Public Use
  Company Number: RU-Eisai-EC-2023-150619

PATIENT
  Age: 59 Year
  Sex: Female
  Weight: 73 kg

DRUGS (1)
  1. LENVIMA [Suspect]
     Active Substance: LENVATINIB
     Indication: Endometrial neoplasm
     Route: 048
     Dates: start: 20230923, end: 20230925

REACTIONS (2)
  - Urticaria [Recovered/Resolved]
  - Laryngeal oedema [Recovered/Resolved]

NARRATIVE: CASE EVENT DATE: 20230925
